FAERS Safety Report 7598551-4 (Version None)
Quarter: 2011Q3

REPORT INFORMATION
  Report Type: 
  Country: None (occurrence: None)
  Receive Date: 20110708
  Receipt Date: 20110627
  Transmission Date: 20111222
  Serious: Yes (Hospitalization, Other)
  Sender: FDA-Public Use
  Company Number: US-ELI_LILLY_AND_COMPANY-US200904000154

PATIENT
  Sex: Male
  Weight: 93.424 kg

DRUGS (15)
  1. BYETTA [Suspect]
     Dosage: 10 UG, EACH EVENING
     Dates: start: 20081121, end: 20090329
  2. DEPAKOTE [Concomitant]
  3. METFORMIN HCL [Concomitant]
     Indication: DIABETES MELLITUS
     Dosage: UNK
     Dates: start: 20070101
  4. NEXIUM [Concomitant]
  5. SIMVASTATIN [Concomitant]
  6. LANTUS [Concomitant]
     Dosage: 25 U, QD
  7. LISINOPRIL [Concomitant]
  8. AVELOX [Concomitant]
     Dosage: 400 MG, QD
  9. TESTOSTERONE [Concomitant]
  10. TERAZOSIN HCL [Concomitant]
  11. BYETTA [Suspect]
     Indication: TYPE 2 DIABETES MELLITUS
     Dosage: 10 UG, BID
     Dates: start: 20061001
  12. CRESTOR [Concomitant]
     Indication: HYPERCHOLESTEROLAEMIA
  13. VITAMIN D [Concomitant]
     Dosage: UNK, WEEKLY (1/W)
  14. PROTONIX [Concomitant]
     Dosage: 40 MG, QD
  15. BYETTA [Suspect]
     Dosage: 5 UG, EACH MORNING
     Dates: start: 20070901, end: 20090329

REACTIONS (6)
  - PANCREATITIS RELAPSING [None]
  - OFF LABEL USE [None]
  - PANCREATITIS CHRONIC [None]
  - PANCREATITIS [None]
  - WEIGHT DECREASED [None]
  - NEPHROPATHY [None]
